FAERS Safety Report 8814879 (Version 1)
Quarter: 2012Q4

REPORT INFORMATION
  Report Type: 
  Country: US (occurrence: US)
  Receive Date: 20120928
  Receipt Date: 20120928
  Transmission Date: 20130627
  Serious: No
  Sender: FDA-Public Use
  Company Number: US-MUTUAL PHARMACEUTICAL COMPANY, INC.-QLQN20110009

PATIENT
  Age: 89 Year
  Sex: Female
  Weight: 50.85 kg

DRUGS (7)
  1. QUALAQUIN [Suspect]
     Indication: MUSCLE CRAMPS
     Route: 048
     Dates: start: 20110826, end: 20110829
  2. QUALAQUIN [Suspect]
     Indication: CRAMPS IN LEGS
  3. DIGOXIN [Concomitant]
     Indication: ATRIAL FIBRILLATION
     Route: 048
  4. COUMADIN [Concomitant]
     Indication: ATRIAL FIBRILLATION
     Route: 048
  5. COUMADIN [Concomitant]
     Route: 048
  6. LEVOXYL [Concomitant]
     Indication: HYPOTHYROIDISM
     Route: 048
  7. ADVAIR [Concomitant]
     Indication: COPD

REACTIONS (4)
  - Off label use [None]
  - Heart rate increased [Recovered/Resolved]
  - Dizziness [Recovered/Resolved]
  - Vision blurred [Recovered/Resolved]
